FAERS Safety Report 6780640 (Version 4)
Quarter: 2015Q1

REPORT INFORMATION
  Report Type: Spontaneous
  Country: US (occurrence: US)
  Receive Date: 20081007
  Receipt Date: 20150331
  Transmission Date: 20150721
  Serious: Yes (Other)
  Sender: FDA-Public Use
  Company Number: US-ASTRAZENECA-2008UW00430

PATIENT
  Age: 64 Year
  Sex: Female
  Weight: 90.7 kg

DRUGS (12)
  1. LEVAQUIN [Concomitant]
     Active Substance: LEVOFLOXACIN
  2. ELAVIL [Concomitant]
     Active Substance: AMITRIPTYLINE HYDROCHLORIDE
  3. TYLENOL [Concomitant]
     Active Substance: ACETAMINOPHEN
     Indication: ARTHRITIS
     Dosage: AS REQUIRED
  4. CRESTOR [Suspect]
     Active Substance: ROSUVASTATIN CALCIUM
     Indication: BLOOD CHOLESTEROL ABNORMAL
     Route: 048
  5. ATENOLOL. [Concomitant]
     Active Substance: ATENOLOL
     Indication: BLOOD PRESSURE INCREASED
     Route: 048
  6. ROBITUSSIN COUGH [Concomitant]
     Indication: COUGH
     Dosage: AS REQUIRED
  7. PEPCID [Concomitant]
     Active Substance: FAMOTIDINE
  8. UNSPECIFIED NEBULIZER [Concomitant]
     Active Substance: UNSPECIFIED INGREDIENT
  9. PROAIR HFA [Concomitant]
     Active Substance: ALBUTEROL SULFATE
  10. ARIMIDEX [Suspect]
     Active Substance: ANASTROZOLE
     Indication: BREAST CANCER
     Route: 048
     Dates: start: 200710
  11. ATIVAN [Concomitant]
     Active Substance: LORAZEPAM
  12. FOSAMAX [Concomitant]
     Active Substance: ALENDRONATE SODIUM
     Indication: OSTEOARTHRITIS

REACTIONS (20)
  - Weight increased [Unknown]
  - Pneumonia [Unknown]
  - Hyperhidrosis [Unknown]
  - Aphasia [Unknown]
  - Cough [Recovered/Resolved]
  - Constipation [Unknown]
  - Arthropathy [Unknown]
  - Mood swings [Unknown]
  - Tooth erosion [Unknown]
  - Diarrhoea [Unknown]
  - Osteoporosis [Unknown]
  - Abdominal pain upper [Unknown]
  - Fibromyalgia [Unknown]
  - Arthralgia [Unknown]
  - Gait disturbance [Unknown]
  - Intentional product misuse [Unknown]
  - Neoplasm malignant [Unknown]
  - Back pain [Not Recovered/Not Resolved]
  - Alopecia [Not Recovered/Not Resolved]
  - Drug dose omission [Unknown]
